FAERS Safety Report 9386614 (Version 1)
Quarter: 2013Q3

REPORT INFORMATION
  Report Type: Spontaneous
  Country: US (occurrence: None)
  Receive Date: 20130703
  Receipt Date: 20130703
  Transmission Date: 20140515
  Serious: No
  Sender: FDA-Public Use
  Company Number: None

PATIENT
  Sex: Male

DRUGS (1)
  1. INLYTA [Suspect]
     Route: 048
     Dates: start: 20130202

REACTIONS (4)
  - Dysphonia [None]
  - Oropharyngeal pain [None]
  - Vomiting [None]
  - Back pain [None]
